FAERS Safety Report 23321790 (Version 1)
Quarter: 2023Q4

REPORT INFORMATION
  Report Type: Report from Study
  Country: US (occurrence: US)
  Receive Date: 20231220
  Receipt Date: 20231220
  Transmission Date: 20240110
  Serious: Yes (Hospitalization)
  Sender: FDA-Public Use
  Company Number: US-TAKEDA-2023TUS121026

PATIENT
  Sex: Male

DRUGS (1)
  1. BRIGATINIB [Suspect]
     Active Substance: BRIGATINIB
     Indication: Chronic myeloid leukaemia recurrent
     Dosage: 180 MILLIGRAM, QD
     Route: 048
     Dates: start: 20181004

REACTIONS (1)
  - Feeling abnormal [Recovered/Resolved]
